FAERS Safety Report 15445261 (Version 1)
Quarter: 2018Q3

REPORT INFORMATION
  Report Type: Spontaneous
  Country: US (occurrence: US)
  Receive Date: 20180831
  Receipt Date: 20180831
  Transmission Date: 20181010
  Serious: Yes (Other)
  Sender: FDA-Public Use
  Company Number: None

PATIENT
  Age: 66 Year
  Sex: Female
  Weight: 62.1 kg

DRUGS (24)
  1. CYCLOBENZAPRINE. [Concomitant]
     Active Substance: CYCLOBENZAPRINE
  2. MUCINEX [Concomitant]
     Active Substance: GUAIFENESIN
  3. NABUMETONE. [Concomitant]
     Active Substance: NABUMETONE
  4. MUCINEX [Concomitant]
     Active Substance: GUAIFENESIN
  5. VITAMIN B12 [Concomitant]
     Active Substance: CYANOCOBALAMIN
  6. CALCIUM [Concomitant]
     Active Substance: CALCIUM
  7. LEVOTHYROXINE. [Concomitant]
     Active Substance: LEVOTHYROXINE
  8. BISOPROLOL/HCTZ [Concomitant]
     Active Substance: BISOPROLOL FUMARATE\HYDROCHLOROTHIAZIDE
  9. DULOXETINE. [Concomitant]
     Active Substance: DULOXETINE
  10. ACYCLOVIR. [Concomitant]
     Active Substance: ACYCLOVIR
  11. GABAPENTIN. [Concomitant]
     Active Substance: GABAPENTIN
  12. METHOTREXATE. [Concomitant]
     Active Substance: METHOTREXATE
  13. VITAMIN D [Concomitant]
     Active Substance: CHOLECALCIFEROL
  14. FOLIC ACID. [Concomitant]
     Active Substance: FOLIC ACID
  15. ALLEGRA?D [Concomitant]
     Active Substance: FEXOFENADINE\PSEUDOEPHEDRINE
  16. AYR SALINE NASAL GEL WITH ALOE VERA [Suspect]
     Active Substance: SODIUM CHLORIDE
     Indication: NASAL DISCOMFORT
  17. LIOTHYRONINE [Concomitant]
     Active Substance: LIOTHYRONINE
  18. PERCOCET [Concomitant]
     Active Substance: ACETAMINOPHEN\OXYCODONE HYDROCHLORIDE
  19. GRAPESEED EXTRACT [Concomitant]
  20. AYR SALINE NASAL GEL WITH ALOE VERA [Suspect]
     Active Substance: SODIUM CHLORIDE
     Indication: NASAL DRYNESS
     Route: 061
     Dates: start: 20180430, end: 20180831
  21. TURMERIC [Concomitant]
     Active Substance: HERBALS\TURMERIC
  22. ZANTAC [Concomitant]
     Active Substance: RANITIDINE HYDROCHLORIDE
  23. ALLEGRA?D [Concomitant]
     Active Substance: FEXOFENADINE\PSEUDOEPHEDRINE
  24. MAGNESIUM [Concomitant]
     Active Substance: MAGNESIUM

REACTIONS (2)
  - Instillation site haemorrhage [None]
  - Instillation site pain [None]

NARRATIVE: CASE EVENT DATE: 20180415
